FAERS Safety Report 23886685 (Version 2)
Quarter: 2024Q3

REPORT INFORMATION
  Report Type: Other
  Country: GB (occurrence: GB)
  Receive Date: 20240522
  Receipt Date: 20240703
  Transmission Date: 20241016
  Serious: Yes (Disabling, Other)
  Sender: STRIDES
  Company Number: None

PATIENT
  Age: 59 Year
  Sex: Female
  Weight: 47 kg

DRUGS (4)
  1. PREDNISOLONE [Suspect]
     Active Substance: PREDNISOLONE
     Indication: Product used for unknown indication
     Dosage: UNK
     Route: 065
  2. GABAPENTIN [Suspect]
     Active Substance: GABAPENTIN
     Indication: Product used for unknown indication
     Dosage: UNK
     Route: 065
  3. PREGABALIN [Suspect]
     Active Substance: PREGABALIN
     Indication: Product used for unknown indication
     Dosage: UNK
     Route: 065
  4. AMITRIPTYLINE [Suspect]
     Active Substance: AMITRIPTYLINE
     Indication: Product used for unknown indication
     Dosage: UNK
     Route: 065

REACTIONS (21)
  - Inappropriate affect [Unknown]
  - Crying [Unknown]
  - Aggression [Unknown]
  - Anger [Unknown]
  - Abnormal dreams [Unknown]
  - Fall [Unknown]
  - Condition aggravated [Unknown]
  - Nausea [Unknown]
  - Vomiting [Unknown]
  - Substance-induced psychotic disorder [Unknown]
  - Confusional state [Unknown]
  - Mood swings [Unknown]
  - Hallucination [Unknown]
  - Mania [Unknown]
  - Amnesia [Unknown]
  - Headache [Unknown]
  - Insomnia [Unknown]
  - Mobility decreased [Unknown]
  - Bedridden [Unknown]
  - Pain [Unknown]
  - Drug intolerance [Unknown]
